FAERS Safety Report 20633703 (Version 10)
Quarter: 2023Q1

REPORT INFORMATION
  Report Type: Report from Study
  Country: CA (occurrence: CA)
  Receive Date: 20220324
  Receipt Date: 20230131
  Transmission Date: 20230418
  Serious: Yes (Hospitalization, Other)
  Sender: FDA-Public Use
  Company Number: CA-OTSUKA-2022_016522

PATIENT
  Sex: Female

DRUGS (3)
  1. CEDAZURIDINE\DECITABINE [Suspect]
     Active Substance: CEDAZURIDINE\DECITABINE
     Indication: Chronic myelomonocytic leukaemia
     Dosage: UNK
     Route: 065
     Dates: start: 20211202, end: 20230125
  2. CEDAZURIDINE\DECITABINE [Suspect]
     Active Substance: CEDAZURIDINE\DECITABINE
     Dosage: 3 PILLS ON EVERY OTHER DAY
     Route: 065
     Dates: start: 20220805
  3. CEDAZURIDINE\DECITABINE [Suspect]
     Active Substance: CEDAZURIDINE\DECITABINE
     Dosage: 1 DF, QOD (1,3, AND 5 EVERY 28 DAYS)
     Route: 065

REACTIONS (18)
  - Malignant neoplasm progression [Unknown]
  - Transfusion [Unknown]
  - Blood potassium decreased [Unknown]
  - Blood product transfusion dependent [Unknown]
  - Red blood cell transfusion [Unknown]
  - Platelet count decreased [Unknown]
  - Illness [Unknown]
  - Alopecia [Unknown]
  - Chills [Unknown]
  - Feeling cold [Unknown]
  - Full blood count abnormal [Unknown]
  - Eastern Cooperative Oncology Group performance status worsened [Unknown]
  - Malaise [Unknown]
  - Pain [Unknown]
  - Asthenia [Unknown]
  - Dyspnoea [Unknown]
  - Product use issue [Unknown]
  - Treatment delayed [Unknown]
